FAERS Safety Report 9026578 (Version 1)
Quarter: 2013Q1

REPORT INFORMATION
  Report Type: Spontaneous
  Country: US (occurrence: None)
  Receive Date: 20130107
  Receipt Date: 20130107
  Transmission Date: 20140127
  Serious: Yes (Life-Threatening)
  Sender: FDA-Public Use
  Company Number: VAL_01239_2013

PATIENT
  Sex: Female

DRUGS (8)
  1. METOPROLOL TARTRATE [Suspect]
     Indication: PRODUCT USED FOR UNKNOWN INDICATION
  2. DIOVAN [Suspect]
     Indication: PRODUCT USED FOR UNKNOWN INDICATION
  3. HYDROCHLOROTHIAZIDE [Suspect]
     Indication: PRODUCT USED FOR UNKNOWN INDICATION
  4. CLONIDINE [Suspect]
  5. ANTIBIOTICS [Suspect]
  6. PREDNISONE [Suspect]
     Route: 048
  7. COMBIVENT [Suspect]
  8. VITAMINS NOS [Suspect]

REACTIONS (22)
  - Local swelling [None]
  - Malaise [None]
  - Respiratory disorder [None]
  - Skin swelling [None]
  - Skin discolouration [None]
  - Overdose [None]
  - Wrong technique in drug usage process [None]
  - Weight increased [None]
  - Mental disorder [None]
  - Memory impairment [None]
  - Urticaria [None]
  - Feeling abnormal [None]
  - Dyspnoea [None]
  - Dysphonia [None]
  - Pharyngeal disorder [None]
  - Muscle twitching [None]
  - Cardiac disorder [None]
  - Feeling abnormal [None]
  - Heart rate increased [None]
  - Nervous system disorder [None]
  - Movement disorder [None]
  - Tremor [None]
